FAERS Safety Report 12210397 (Version 2)
Quarter: 2018Q1

REPORT INFORMATION
  Report Type: Spontaneous
  Country: BR (occurrence: BR)
  Receive Date: 20160325
  Receipt Date: 20180227
  Transmission Date: 20180508
  Serious: Yes (Hospitalization)
  Sender: FDA-Public Use
  Company Number: BR-PFIZER INC-2014115923

PATIENT
  Age: 55 Year
  Sex: Female
  Weight: 63 kg

DRUGS (3)
  1. SUTENT [Suspect]
     Active Substance: SUNITINIB MALATE
     Indication: METASTASES TO LUNG
     Dosage: UNK
     Dates: start: 20180212
  2. SUTENT [Suspect]
     Active Substance: SUNITINIB MALATE
     Indication: RENAL CANCER METASTATIC
     Dosage: 50 MG, 1X/DAY
     Route: 048
     Dates: start: 20140404
  3. COVERSYL PLUS [Concomitant]
     Active Substance: INDAPAMIDE\PERINDOPRIL
     Dosage: UNK

REACTIONS (8)
  - Tongue injury [Unknown]
  - Tongue discomfort [Unknown]
  - Feeling abnormal [Unknown]
  - Hypertension [Unknown]
  - Dysphagia [Unknown]
  - Skin lesion [Not Recovered/Not Resolved]
  - Headache [Unknown]
  - Mouth injury [Unknown]

NARRATIVE: CASE EVENT DATE: 201404
